FAERS Safety Report 5924046-7 (Version None)
Quarter: 2008Q4

REPORT INFORMATION
  Report Type: 
  Country: None (occurrence: None)
  Receive Date: 20081020
  Receipt Date: 20081016
  Transmission Date: 20090506
  Serious: Yes (Death, Hospitalization)
  Sender: FDA-Public Use
  Company Number: PHBS2008SE02409

PATIENT
  Sex: Male

DRUGS (6)
  1. EXJADE [Suspect]
     Indication: SERUM FERRITIN INCREASED
     Dates: start: 20070125, end: 20071123
  2. DESFERAL [Suspect]
     Dosage: 4 G / 48 HOUR INFUSION PUMP
     Dates: start: 20071016
  3. WARFARIN SODIUM [Concomitant]
     Dosage: 2.5 MG, UNK
  4. MINDIAB [Concomitant]
  5. DIGOXIN [Concomitant]
  6. TENORMIN [Concomitant]
     Dosage: 2.5 MG, UNK

REACTIONS (30)
  - ACTIVATED PARTIAL THROMBOPLASTIN TIME PROLONGED [None]
  - ANURIA [None]
  - AZOTAEMIA [None]
  - BIOPSY KIDNEY [None]
  - BLOOD CREATININE INCREASED [None]
  - BLOOD GLUCOSE INCREASED [None]
  - BLOOD UREA INCREASED [None]
  - C-REACTIVE PROTEIN INCREASED [None]
  - CATHETER SITE HAEMORRHAGE [None]
  - COAGULATION FACTOR DECREASED [None]
  - COAGULOPATHY [None]
  - CYSTITIS INTERSTITIAL [None]
  - DEATH [None]
  - DIALYSIS [None]
  - DYSPNOEA [None]
  - GENERALISED OEDEMA [None]
  - GLOMERULAR FILTRATION RATE DECREASED [None]
  - GLOMERULONEPHRITIS [None]
  - NEPHRITIS [None]
  - OEDEMA PERIPHERAL [None]
  - PAIN IN EXTREMITY [None]
  - PROTHROMBIN LEVEL INCREASED [None]
  - PSEUDOMONAS INFECTION [None]
  - RENAL FAILURE [None]
  - RENAL TUBULAR NECROSIS [None]
  - SKIN ULCER [None]
  - URINE OUTPUT DECREASED [None]
  - VARICOSE VEIN [None]
  - WEIGHT INCREASED [None]
  - WOUND INFECTION [None]
